FAERS Safety Report 8436261-1 (Version None)
Quarter: 2012Q2

REPORT INFORMATION
  Report Type: 
  Country: None (occurrence: None)
  Receive Date: 20120614
  Receipt Date: 20120612
  Transmission Date: 20120825
  Serious: Yes (Other)
  Sender: FDA-Public Use
  Company Number: US-PFIZER INC-2012142082

PATIENT
  Sex: Male
  Weight: 56.689 kg

DRUGS (1)
  1. CHANTIX [Suspect]
     Indication: SMOKING CESSATION THERAPY
     Dosage: UNK
     Route: 048

REACTIONS (5)
  - ANGER [None]
  - SUICIDAL IDEATION [None]
  - DEPRESSION [None]
  - ABNORMAL DREAMS [None]
  - FRUSTRATION [None]
